FAERS Safety Report 8886494 (Version 1)
Quarter: 2012Q4

REPORT INFORMATION
  Report Type: 
  Country: US (occurrence: US)
  Receive Date: 20121105
  Receipt Date: 20121105
  Transmission Date: 20130627
  Serious: No
  Sender: FDA-Public Use
  Company Number: US-ASTRAZENECA-2012SE81374

PATIENT
  Age: 65 Year
  Sex: Male

DRUGS (15)
  1. SYMBICORT PMDI [Suspect]
     Dosage: 160/4.5 MCG 2 PUFFS TWO TIMES A DAY
     Route: 055
     Dates: start: 20120601
  2. PRILOSEC [Suspect]
     Route: 048
     Dates: start: 20120323
  3. AMBIEN [Concomitant]
  4. TRAMADOL [Concomitant]
  5. PRAVACHOL [Concomitant]
     Route: 048
     Dates: start: 20120924
  6. LISINOPRIL [Concomitant]
     Route: 048
     Dates: start: 20120924
  7. MICROZIDE [Concomitant]
     Route: 048
     Dates: start: 20120924
  8. ZYLOPRIM [Concomitant]
     Route: 048
     Dates: start: 20120924
  9. REGLAN [Concomitant]
     Dosage: 10MGC 4 TIMES DAILY AS NEEDED
     Route: 048
     Dates: start: 20120924
  10. LOTRISONE [Concomitant]
     Dosage: 1-0.05 PERCENT 4 TIMES DAILY
     Route: 061
     Dates: start: 20120924
  11. ATIVAN [Concomitant]
     Route: 048
     Dates: start: 20120924
  12. ALBUTEROL [Concomitant]
     Indication: DYSPNOEA
     Dosage: 2 PUFFS EVERY 6 HOURS AS NEEDED
     Route: 055
     Dates: start: 20120829
  13. CELEXA [Concomitant]
     Route: 048
  14. ASPIRIN [Concomitant]
     Route: 048
  15. VITAMIN D [Concomitant]
     Dosage: DAILY
     Route: 048

REACTIONS (1)
  - Dyspnoea [Unknown]
